FAERS Safety Report 8356749-1 (Version None)
Quarter: 2012Q2

REPORT INFORMATION
  Report Type: 
  Country: None (occurrence: None)
  Receive Date: 20120511
  Receipt Date: 20120511
  Transmission Date: 20120825
  Serious: No
  Sender: FDA-Public Use
  Company Number: None

PATIENT
  Age: 62 Year
  Sex: Male
  Weight: 85.18 kg

DRUGS (1)
  1. CIPROFLOXACIN [Suspect]
     Dosage: 500MG Q12HOURS ORAL
     Route: 048

REACTIONS (1)
  - PARAESTHESIA [None]
